FAERS Safety Report 8967267 (Version 1)
Quarter: 2012Q4

REPORT INFORMATION
  Report Type: 
  Country: US (occurrence: US)
  Receive Date: 20121214
  Receipt Date: 20121214
  Transmission Date: 20130627
  Serious: No
  Sender: FDA-Public Use
  Company Number: US-GLAXOSMITHKLINE-A0976970A

PATIENT
  Age: 62 Year
  Sex: Male

DRUGS (2)
  1. FLONASE [Suspect]
     Indication: MULTIPLE ALLERGIES
     Dosage: 2SPR Per day
     Route: 045
  2. NO CONCURRENT MEDICATION [Concomitant]

REACTIONS (2)
  - Oral pain [Unknown]
  - Product quality issue [Unknown]
